FAERS Safety Report 5356477-0 (Version None)
Quarter: 2007Q2

REPORT INFORMATION
  Report Type: 
  Country: None (occurrence: None)
  Receive Date: 20070530
  Receipt Date: 20070102
  Transmission Date: 20071010
  Serious: Yes (Hospitalization, Other)
  Sender: FDA-Public Use
  Company Number: US200609006651

PATIENT
  Age: 39 Year
  Sex: Male
  Weight: 165.1 kg

DRUGS (7)
  1. ZYPREXA [Suspect]
     Dosage: SEE IMAGE
     Dates: start: 20010101
  2. ARIPIPRAZOLE [Concomitant]
  3. QUETIAPINE FUMARATE [Concomitant]
  4. DIVALPROEX SODIUM [Concomitant]
  5. FLUOXETINE [Concomitant]
  6. MIRTAZAPINE [Concomitant]
  7. VENLAFAXINE HCL [Concomitant]
     Dates: start: 20010101

REACTIONS (9)
  - BLOOD CHOLESTEROL INCREASED [None]
  - DIABETES MELLITUS [None]
  - HYPERGLYCAEMIA [None]
  - HYPERTENSION [None]
  - HYPOGLYCAEMIA [None]
  - METABOLIC DISORDER [None]
  - OBESITY [None]
  - PANCREATITIS [None]
  - VISION BLURRED [None]
